FAERS Safety Report 21483610 (Version 1)
Quarter: 2022Q4

REPORT INFORMATION
  Report Type: Spontaneous
  Country: IT (occurrence: IT)
  Receive Date: 20221020
  Receipt Date: 20221020
  Transmission Date: 20230112
  Serious: Yes (Other)
  Sender: FDA-Public Use
  Company Number: IT-SUN PHARMACEUTICAL INDUSTRIES LTD-2022RR-360173

PATIENT
  Age: 50 Year
  Sex: Male

DRUGS (3)
  1. CAPECITABINE [Suspect]
     Active Substance: CAPECITABINE
     Indication: Metastases to rectum
     Dosage: 2000 MILLIGRAM/SQ. METER, DAILY ON DAYS 1?15
     Route: 048
  2. OXALIPLATIN [Suspect]
     Active Substance: OXALIPLATIN
     Indication: Metastases to rectum
     Dosage: 130 MILLIGRAM/SQ. METER ON DAY 1
     Route: 040
  3. BEVACIZUMAB [Suspect]
     Active Substance: BEVACIZUMAB
     Indication: Metastases to rectum
     Dosage: 7.5 MILLIGRAM/KILOGRAM ON DAY 1
     Route: 040

REACTIONS (1)
  - Gastrointestinal toxicity [Unknown]
